FAERS Safety Report 7398417-9 (Version None)
Quarter: 2011Q2

REPORT INFORMATION
  Report Type: 
  Country: None (occurrence: None)
  Receive Date: 20110406
  Receipt Date: 20110323
  Transmission Date: 20111010
  Serious: Yes (Life-Threatening)
  Sender: FDA-Public Use
  Company Number: DK-MYLANLABS-2011S1006341

PATIENT
  Age: 52 Year
  Sex: Female

DRUGS (3)
  1. THIORIDAZINE [Concomitant]
     Route: 065
  2. OLANZAPINE [Concomitant]
     Route: 065
  3. CLOZAPINE [Suspect]
     Indication: SCHIZOPHRENIA, DISORGANISED TYPE
     Dosage: CLOZAPINE EXPOSURE: 7549 DEFINED DAILY DOSES (DDD=300MG)
     Route: 065

REACTIONS (1)
  - ACUTE MYELOID LEUKAEMIA [None]
